FAERS Safety Report 6417025-7 (Version None)
Quarter: 2009Q4

REPORT INFORMATION
  Report Type: 
  Country: None (occurrence: None)
  Receive Date: 20091026
  Receipt Date: 20091016
  Transmission Date: 20100525
  Serious: Yes (Other)
  Sender: FDA-Public Use
  Company Number: UKP09000174

PATIENT
  Age: 42 Year

DRUGS (7)
  1. ASACOL [Suspect]
     Indication: COLITIS
     Dosage: 800 MG, 4/DAY, ORAL
     Route: 048
  2. AZATHIOPRINE [Concomitant]
  3. CALCIUM CARBONATE [Concomitant]
  4. CERAZETTE /00011001/ (CEFALORIDINE) [Concomitant]
  5. MESALAMINE [Concomitant]
  6. PREDNISOLONE [Concomitant]
  7. VITAMIN B12 /00056201/ (CYANOCOBALAMIN) [Concomitant]

REACTIONS (1)
  - HALLUCINATION [None]
